FAERS Safety Report 7416171-9 (Version None)
Quarter: 2011Q2

REPORT INFORMATION
  Report Type: 
  Country: None (occurrence: None)
  Receive Date: 20110414
  Receipt Date: 20110401
  Transmission Date: 20111010
  Serious: No
  Sender: FDA-Public Use
  Company Number: PR-B.I. PHARMACEUTICALS,INC./RIDGEFIELD-2011-BP-02644BP

PATIENT
  Sex: Male

DRUGS (6)
  1. NORVASC [Concomitant]
     Indication: ATRIAL FIBRILLATION
     Dosage: 5 MG
  2. COREG [Concomitant]
     Indication: ATRIAL FIBRILLATION
     Dosage: 25 MG
  3. ZOCOR [Concomitant]
     Dosage: 40 MG
  4. FLECAINIDE ACETATE [Concomitant]
     Indication: ATRIAL FIBRILLATION
     Dosage: 200 MG
  5. PRADAXA [Suspect]
     Indication: ATRIAL FIBRILLATION
     Dosage: 300 MG
     Route: 048
     Dates: start: 20101201
  6. LEXAPRO [Concomitant]
     Dosage: 10 MG

REACTIONS (2)
  - OEDEMA PERIPHERAL [None]
  - GASTRIC PH DECREASED [None]
